FAERS Safety Report 20997971 (Version 1)
Quarter: 2022Q2

REPORT INFORMATION
  Report Type: Spontaneous
  Country: CN (occurrence: CN)
  Receive Date: 20220623
  Receipt Date: 20220623
  Transmission Date: 20220720
  Serious: Yes (Hospitalization, Other)
  Sender: FDA-Public Use
  Company Number: CN-Accord-267313

PATIENT
  Age: 55 Year
  Sex: Male

DRUGS (3)
  1. MYCOPHENOLATE MOFETIL [Suspect]
     Active Substance: MYCOPHENOLATE MOFETIL
     Indication: Transplant rejection
     Dosage: 0.5G EVERY 12 HOURS
     Dates: start: 20190306
  2. TACROLIMUS [Suspect]
     Active Substance: TACROLIMUS
     Indication: Transplant rejection
     Dosage: 3 MG EVERY 12 HOURS
     Dates: start: 20190306
  3. PREDNISONE [Suspect]
     Active Substance: PREDNISONE
     Indication: Transplant rejection
     Dosage: 30MG ONCE A DAY
     Dates: start: 20190306

REACTIONS (8)
  - Penicillium infection [Unknown]
  - Acinetobacter test positive [Unknown]
  - Pneumonia [Unknown]
  - Respiratory failure [Unknown]
  - Cytomegalovirus infection [Unknown]
  - Human polyomavirus infection [Unknown]
  - Infection parasitic [Unknown]
  - Acute respiratory distress syndrome [Unknown]
